FAERS Safety Report 9880338 (Version 3)
Quarter: 2015Q3

REPORT INFORMATION
  Report Type: Report from Study
  Country: US (occurrence: US)
  Receive Date: 20140207
  Receipt Date: 20150716
  Transmission Date: 20151125
  Serious: Yes (Death)
  Sender: FDA-Public Use
  Company Number: US-ROCHE-1278100

PATIENT
  Sex: Female

DRUGS (11)
  1. NEURONTIN [Concomitant]
     Active Substance: GABAPENTIN
     Dosage: IN THE MORNING
     Route: 048
  2. MIRALAX [Concomitant]
     Active Substance: POLYETHYLENE GLYCOL 3350
     Route: 048
  3. COUMADIN [Concomitant]
     Active Substance: WARFARIN SODIUM
     Dosage: AT NIGHT
     Route: 065
  4. LANSOPRAZOLE. [Concomitant]
     Active Substance: LANSOPRAZOLE
     Route: 048
  5. IVIG [Concomitant]
     Active Substance: HUMAN IMMUNOGLOBULIN G
  6. ZELBORAF [Suspect]
     Active Substance: VEMURAFENIB
     Indication: METASTATIC MALIGNANT MELANOMA
     Dosage: 4 TABLETS TWO TIMES DAILY
     Route: 048
  7. MOTRIN [Concomitant]
     Active Substance: IBUPROFEN
     Dosage: EVERY 6 HOURS AS NEEDED
     Route: 048
  8. NORCO [Concomitant]
     Active Substance: ACETAMINOPHEN\HYDROCODONE BITARTRATE
     Indication: PAIN
     Dosage: 1-325 MG (TAKE 2 TABLETS EVERY 14 HOURS)
     Route: 048
  9. VITAMIN B12 [Concomitant]
     Active Substance: CYANOCOBALAMIN
     Dosage: 1 CAPSULE
     Route: 065
  10. CARAFATE [Concomitant]
     Active Substance: SUCRALFATE
     Dosage: 4 TIMES A DAY ORAL SUSPENSION
     Route: 048
  11. ZELBORAF [Suspect]
     Active Substance: VEMURAFENIB
     Dosage: 4 TABLETS BY MOUTH TWO TIMES DAILY
     Route: 048

REACTIONS (10)
  - Bone density decreased [Unknown]
  - Asthenia [Unknown]
  - Weight decreased [Unknown]
  - Alopecia [Unknown]
  - Gait disturbance [Unknown]
  - Death [Fatal]
  - Squamous cell carcinoma of skin [Unknown]
  - Pain in extremity [Unknown]
  - Chronic inflammatory demyelinating polyradiculoneuropathy [Unknown]
  - Malignant melanoma [Unknown]
